FAERS Safety Report 8575186-8 (Version None)
Quarter: 2012Q3

REPORT INFORMATION
  Report Type: 
  Country: None (occurrence: None)
  Receive Date: 20120807
  Receipt Date: 20120725
  Transmission Date: 20120928
  Serious: Yes (Other)
  Sender: FDA-Public Use
  Company Number: US-ELI_LILLY_AND_COMPANY-US201207008350

PATIENT
  Sex: Female

DRUGS (1)
  1. CYMBALTA [Suspect]
     Indication: ANXIETY
     Dosage: 30MG, UNK
     Dates: start: 20120724, end: 20120725

REACTIONS (4)
  - LIP SWELLING [None]
  - SWOLLEN TONGUE [None]
  - ENERGY INCREASED [None]
  - INSOMNIA [None]
